FAERS Safety Report 7726202-4 (Version None)
Quarter: 2011Q3

REPORT INFORMATION
  Report Type: 
  Country: None (occurrence: None)
  Receive Date: 20110902
  Receipt Date: 20110826
  Transmission Date: 20111222
  Serious: Yes (Life-Threatening, Hospitalization, Other)
  Sender: FDA-Public Use
  Company Number: US-ACTELION-A-US2011-44435

PATIENT

DRUGS (2)
  1. COUMADIN [Concomitant]
  2. TRACLEER [Suspect]
     Indication: PULMONARY ARTERIAL HYPERTENSION
     Dosage: 125 MG, BID
     Route: 048
     Dates: start: 20030609, end: 20110101

REACTIONS (4)
  - URINARY TRACT INFECTION [None]
  - INFECTION [None]
  - LUPUS ENCEPHALITIS [None]
  - SYSTEMIC LUPUS ERYTHEMATOSUS [None]
